FAERS Safety Report 21220251 (Version 1)
Quarter: 2022Q3

REPORT INFORMATION
  Report Type: Report from Study
  Country: ES (occurrence: ES)
  Receive Date: 20220817
  Receipt Date: 20220817
  Transmission Date: 20221026
  Serious: Yes (Hospitalization)
  Sender: FDA-Public Use
  Company Number: None

PATIENT
  Age: 87 Year
  Sex: Female

DRUGS (4)
  1. ENALAPRIL MALEATE [Interacting]
     Active Substance: ENALAPRIL MALEATE
     Indication: Hypertension
     Dosage: ENALAPRIL MALEATO (2142MA) UNIT DOSE : 20 MG  , FREQUENCY TIME :  1 DAY ,  THERAPY  END DATE : NASK
     Dates: start: 20220407
  2. HYDROCHLOROTHIAZIDE [Interacting]
     Active Substance: HYDROCHLOROTHIAZIDE
     Indication: Hypertension
     Dosage: HIDROCLOROTIAZIDA (1343A) , UNIT DOSE : 25 MG , FREQUENCY TIME : 1 DAY  , DURATION : 93 DAYS
     Dates: start: 20220407, end: 20220708
  3. AMIODARONE HYDROCHLORIDE [Concomitant]
     Active Substance: AMIODARONE HYDROCHLORIDE
     Indication: Atrial fibrillation
     Dosage: AMIODARONA HIDROCLORURO (392CH) , UNIT DOSE : 600 MG , FREQUENCY TIME :  1 WEEKS
     Dates: start: 20220218
  4. EDOXABAN TOSYLATE [Concomitant]
     Active Substance: EDOXABAN TOSYLATE
     Indication: Atrial fibrillation
     Dosage: EDOXABAN TOSILATO (9165RU) , UNIT DOSE : 30 MG , FREQUENCY TIME :  1 DAY
     Dates: start: 20220218

REACTIONS (2)
  - Hyponatraemia [Recovered/Resolved]
  - Drug interaction [Unknown]

NARRATIVE: CASE EVENT DATE: 20220427
